FAERS Safety Report 5860783-0 (Version None)
Quarter: 2008Q3

REPORT INFORMATION
  Report Type: 
  Country: None (occurrence: None)
  Receive Date: 20080827
  Receipt Date: 20080122
  Transmission Date: 20090109
  Serious: No
  Sender: FDA-Public Use
  Company Number: US-ABBOTT-07P-163-0425961-00

PATIENT
  Sex: Male
  Weight: 92.23 kg

DRUGS (10)
  1. COATED PDS [Suspect]
     Indication: BLOOD CHOLESTEROL INCREASED
     Route: 048
     Dates: start: 20070501, end: 20071112
  2. COATED PDS [Suspect]
     Indication: HIGH DENSITY LIPOPROTEIN DECREASED
     Dosage: TWO 500 MILLIGRAMS NIASPAN UNCOATED
     Route: 048
     Dates: end: 20070501
  3. VALSARTAN [Concomitant]
     Indication: HYPERTENSION
     Route: 048
  4. METOPROLOL SUCCINATE [Concomitant]
     Indication: ATRIAL FIBRILLATION
     Route: 048
  5. AMIODARONE [Concomitant]
     Indication: ATRIAL FIBRILLATION
     Route: 048
  6. ATORVASTATIN CALCIUM [Concomitant]
     Indication: BLOOD CHOLESTEROL INCREASED
     Route: 048
  7. ALLOPURINOL [Concomitant]
     Indication: GOUT
     Route: 048
  8. MONTELUKAST SODIUM [Concomitant]
     Indication: SEASONAL ALLERGY
     Route: 048
  9. MELOXICAM [Concomitant]
     Indication: OSTEOARTHRITIS
     Route: 048
  10. BUDESONIDE [Concomitant]
     Indication: SEASONAL ALLERGY
     Route: 055

REACTIONS (2)
  - PLATELET COUNT DECREASED [None]
  - PRURITUS [None]
